FAERS Safety Report 4554027-X (Version None)
Quarter: 2005Q1

REPORT INFORMATION
  Report Type: 
  Country: None (occurrence: None)
  Receive Date: 20050118
  Receipt Date: 20050110
  Transmission Date: 20050727
  Serious: Yes (Hospitalization)
  Sender: FDA-Public Use
  Company Number: CH-ROCHE-391784

PATIENT
  Age: 76 Year
  Sex: Male

DRUGS (5)
  1. TOREM [Suspect]
     Indication: DRUG USE FOR UNKNOWN INDICATION
     Route: 048
     Dates: start: 20041115
  2. ZESTRIL [Concomitant]
     Route: 048
     Dates: start: 20041115
  3. ASPIRIN [Concomitant]
     Route: 048
     Dates: start: 20041115
  4. BELOC-ZOK [Concomitant]
     Route: 048
     Dates: start: 20041115
  5. PRAVASTATIN SODIUM [Concomitant]
     Route: 048
     Dates: start: 20041115

REACTIONS (3)
  - DYSGEUSIA [None]
  - MYOCARDIAL INFARCTION [None]
  - SALIVARY HYPERSECRETION [None]
